FAERS Safety Report 6460847-7 (Version None)
Quarter: 2009Q4

REPORT INFORMATION
  Report Type: 
  Country: None (occurrence: None)
  Receive Date: 20091130
  Receipt Date: 20091118
  Transmission Date: 20100525
  Serious: Yes (Death, Hospitalization, Other)
  Sender: FDA-Public Use
  Company Number: US-PFIZER INC-2009284426

PATIENT
  Sex: Male

DRUGS (1)
  1. SUTENT [Suspect]
     Indication: METASTATIC RENAL CELL CARCINOMA
     Dosage: 50 MG, 1X/DAY X 28 DAYS EVERY 42 DAYS
     Dates: start: 20090929, end: 20091018

REACTIONS (6)
  - BLOOD COUNT ABNORMAL [None]
  - DEATH [None]
  - DEHYDRATION [None]
  - NAUSEA [None]
  - URINARY TRACT INFECTION [None]
  - VOMITING [None]
